FAERS Safety Report 21728702 (Version 2)
Quarter: 2023Q1

REPORT INFORMATION
  Report Type: Report from Study
  Country: JP (occurrence: None)
  Receive Date: 20221214
  Receipt Date: 20230209
  Transmission Date: 20230417
  Serious: Yes (Other)
  Sender: FDA-Public Use
  Company Number: 2022A402899

PATIENT
  Age: 81 Year
  Sex: Male
  Weight: 60 kg

DRUGS (10)
  1. ONDEXXYA [Suspect]
     Active Substance: ANDEXANET ALFA
     Indication: Aortic dissection
     Dosage: 400 MG + 480 MG (880 MG)
     Route: 042
     Dates: start: 20220803
  2. HEPARIN SODIUM [Suspect]
     Active Substance: HEPARIN SODIUM
     Dosage: 18000 UNITS-10000 U-15000 U-10000 U-5000 U-5000 U-1000 U-10000 U-5000 U
  3. AMIODARONE [Concomitant]
     Active Substance: AMIODARONE
     Route: 048
     Dates: start: 20220806
  4. AMIODARONE [Concomitant]
     Active Substance: AMIODARONE
     Route: 048
  5. RABEPRAZOLE SODIUM [Concomitant]
     Active Substance: RABEPRAZOLE SODIUM
     Route: 048
     Dates: start: 20220804
  6. ROZEREM [Concomitant]
     Active Substance: RAMELTEON
     Route: 048
     Dates: start: 20220804
  7. AMLODIPINE [Concomitant]
     Active Substance: AMLODIPINE BESYLATE
     Route: 048
     Dates: start: 20220804
  8. ELIQUIS [Concomitant]
     Active Substance: APIXABAN
     Indication: Ischaemic stroke
     Route: 065
     Dates: end: 20220803
  9. PROTAMINE SULFATE [Concomitant]
     Active Substance: PROTAMINE SULFATE
     Dosage: DOSE UNKNOWN
     Route: 065
  10. SPIRONOLACTONE [Concomitant]
     Active Substance: SPIRONOLACTONE
     Route: 048
     Dates: start: 20220804

REACTIONS (2)
  - Procedural haemorrhage [Recovering/Resolving]
  - Coagulation time [Unknown]

NARRATIVE: CASE EVENT DATE: 20220803
